FAERS Safety Report 5298523-9 (Version None)
Quarter: 2007Q2

REPORT INFORMATION
  Report Type: 
  Country: None (occurrence: None)
  Receive Date: 20070409
  Receipt Date: 20070402
  Transmission Date: 20071010
  Serious: Yes (Hospitalization)
  Sender: FDA-Public Use
  Company Number: 234983K06USA

PATIENT
  Age: 43 Year
  Sex: Female
  Weight: 92.9874 kg

DRUGS (3)
  1. REBIF [Suspect]
     Indication: MULTIPLE SCLEROSIS
     Dosage: SEE IMAGE
     Route: 058
     Dates: start: 20060802, end: 20060821
  2. REBIF [Suspect]
     Indication: MULTIPLE SCLEROSIS
     Dosage: SEE IMAGE
     Route: 058
     Dates: start: 20060821, end: 20061201
  3. LORTAB [Concomitant]

REACTIONS (3)
  - HEADACHE [None]
  - MENINGITIS ASEPTIC [None]
  - MULTIPLE SCLEROSIS RELAPSE [None]
